FAERS Safety Report 7609609-5 (Version None)
Quarter: 2011Q3

REPORT INFORMATION
  Report Type: 
  Country: None (occurrence: None)
  Receive Date: 20110714
  Receipt Date: 20110712
  Transmission Date: 20111222
  Serious: Yes (Death, Other)
  Sender: FDA-Public Use
  Company Number: US-PFIZER INC-2011117604

PATIENT
  Sex: Female

DRUGS (4)
  1. DILAUDID [Concomitant]
     Indication: PAIN
     Dosage: UNK
  2. MORPHINE [Concomitant]
     Indication: PAIN
     Dosage: UNK
  3. LYRICA [Suspect]
     Indication: FIBROMYALGIA
     Dosage: UNK
     Route: 048
     Dates: start: 20100101
  4. NORCO [Concomitant]
     Indication: PAIN
     Dosage: UNK

REACTIONS (2)
  - DEATH [None]
  - OVERDOSE [None]
